FAERS Safety Report 8976362 (Version 3)
Quarter: 2013Q1

REPORT INFORMATION
  Report Type: Spontaneous
  Country: JP (occurrence: JP)
  Receive Date: 20121220
  Receipt Date: 20130123
  Transmission Date: 20140127
  Serious: Yes (Hospitalization)
  Sender: FDA-Public Use
  Company Number: JP-OTSUKA-JP-2012-17158

PATIENT
  Age: 89 Year
  Sex: Female

DRUGS (1)
  1. PLETAAL [Suspect]
     Indication: CEREBRAL INFARCTION
     Dosage: 200 MG MILLIGRAM(S), DAILY DOSE
     Route: 048

REACTIONS (5)
  - Acute pulmonary oedema [Unknown]
  - Acute myocardial infarction [Unknown]
  - Oedema peripheral [None]
  - Arteriosclerosis [None]
  - Condition aggravated [None]
